FAERS Safety Report 7741636-X (Version None)
Quarter: 2011Q3

REPORT INFORMATION
  Report Type: 
  Country: None (occurrence: None)
  Receive Date: 20110911
  Receipt Date: 20110901
  Transmission Date: 20111222
  Serious: Yes (Death)
  Sender: FDA-Public Use
  Company Number: US-CELGENEUS-163-21880-11090247

PATIENT
  Sex: Male

DRUGS (4)
  1. ASPIRIN [Concomitant]
     Dosage: 500 MILLIGRAM
     Route: 048
  2. HALDOL [Concomitant]
     Dosage: 5 MILLIGRAM/MILLILITERS
     Route: 041
  3. MORPHINE SULFATE [Concomitant]
     Dosage: 10 MILLIGRAM
     Route: 048
  4. REVLIMID [Suspect]
     Indication: LYMPHOMA
     Dosage: 25 MILLIGRAM
     Route: 048
     Dates: start: 20110304

REACTIONS (1)
  - DEATH [None]
